FAERS Safety Report 17518364 (Version 1)
Quarter: 2020Q1

REPORT INFORMATION
  Report Type: Report from Study
  Country: CO (occurrence: CO)
  Receive Date: 20200310
  Receipt Date: 20200310
  Transmission Date: 20200409
  Serious: Yes (Other)
  Sender: FDA-Public Use
  Company Number: CO-ROCHE-2530364

PATIENT
  Sex: Male

DRUGS (1)
  1. XELODA [Suspect]
     Active Substance: CAPECITABINE
     Indication: COLON CANCER
     Route: 048

REACTIONS (8)
  - Headache [Unknown]
  - Visual impairment [Unknown]
  - Vomiting [Unknown]
  - Dizziness [Unknown]
  - Blindness [Unknown]
  - Syncope [Unknown]
  - Feeling abnormal [Unknown]
  - Malaise [Unknown]
